FAERS Safety Report 9549676 (Version 1)
Quarter: 2013Q3

REPORT INFORMATION
  Report Type: Spontaneous
  Country: US (occurrence: US)
  Receive Date: 20130924
  Receipt Date: 20130924
  Transmission Date: 20140515
  Serious: No
  Sender: FDA-Public Use
  Company Number: US-009507513-1309USA010666

PATIENT
  Sex: Female

DRUGS (2)
  1. AFRIN NO DRIP [Suspect]
     Indication: PRODUCT USED FOR UNKNOWN INDICATION
     Dosage: UNK, UNKNOWN
     Route: 045
  2. AFRIN NO DRIP [Suspect]
     Dosage: UNK, UNKNOWN
     Route: 045

REACTIONS (2)
  - Nasal disorder [Unknown]
  - Wrong technique in drug usage process [Unknown]
